FAERS Safety Report 16777145 (Version 2)
Quarter: 2019Q3

REPORT INFORMATION
  Report Type: Report from Study
  Country: US (occurrence: US)
  Receive Date: 20190905
  Receipt Date: 20190906
  Transmission Date: 20191005
  Serious: No
  Sender: FDA-Public Use
  Company Number: US-EMD SERONO-9099720

PATIENT
  Age: 49 Year
  Sex: Female

DRUGS (1)
  1. MAVENCLAD [Suspect]
     Active Substance: CLADRIBINE
     Indication: MULTIPLE SCLEROSIS
     Dosage: FIRST CYCLE
     Route: 048
     Dates: start: 20190617, end: 20190621

REACTIONS (9)
  - Nervousness [Unknown]
  - Dizziness [Unknown]
  - Sensory disturbance [Unknown]
  - Muscle spasms [Unknown]
  - Hypoaesthesia [Unknown]
  - Paraesthesia [Unknown]
  - Flushing [Unknown]
  - Multiple sclerosis relapse [Unknown]
  - Muscle tightness [Unknown]

NARRATIVE: CASE EVENT DATE: 201906
